FAERS Safety Report 19293037 (Version 4)
Quarter: 2021Q3

REPORT INFORMATION
  Report Type: Spontaneous
  Country: HU (occurrence: HU)
  Receive Date: 20210524
  Receipt Date: 20210811
  Transmission Date: 20211014
  Serious: Yes (Other)
  Sender: FDA-Public Use
  Company Number: HU-ASTELLAS-2021US017959

PATIENT
  Age: 54 Year
  Sex: Male

DRUGS (11)
  1. ROSUVASTATIN. [Concomitant]
     Active Substance: ROSUVASTATIN
     Indication: PRODUCT USED FOR UNKNOWN INDICATION
     Dosage: 5 MG, ONCE DAILY, IN THE EVENING
     Route: 065
  2. FAMOTIDINE. [Concomitant]
     Active Substance: FAMOTIDINE
     Indication: PRODUCT USED FOR UNKNOWN INDICATION
     Dosage: 40 MG, ONCE DAILY, IN THE EVENING
     Route: 065
  3. MYCOPHENOLATE [Suspect]
     Active Substance: MYCOPHENOLIC ACID
     Indication: RENAL TRANSPLANT
     Route: 065
  4. FUROSEMIDE. [Concomitant]
     Active Substance: FUROSEMIDE
     Indication: PRODUCT USED FOR UNKNOWN INDICATION
     Dosage: 40 MG, ONCE DAILY, IN THE MORNING
     Route: 065
  5. DOXAZOSIN [Concomitant]
     Active Substance: DOXAZOSIN MESYLATE
     Indication: HYPERTENSION
     Route: 065
  6. PREDNISOLONE. [Suspect]
     Active Substance: PREDNISOLONE
     Indication: RENAL TRANSPLANT
     Dosage: 5 MG, ONCE DAILY, IN THE MORNING
     Route: 065
  7. PRAZOSIN. [Concomitant]
     Active Substance: PRAZOSIN
     Indication: PRODUCT USED FOR UNKNOWN INDICATION
     Route: 065
  8. ALLOPURINOL. [Concomitant]
     Active Substance: ALLOPURINOL
     Indication: PRODUCT USED FOR UNKNOWN INDICATION
     Route: 065
  9. TACROLIMUS. [Suspect]
     Active Substance: TACROLIMUS
     Indication: RENAL TRANSPLANT
     Dosage: 2 MG, ONCE DAILY, IN THE MORNING
     Route: 065
     Dates: start: 2009
  10. URAPIDIL [Concomitant]
     Active Substance: URAPIDIL
     Indication: HYPERTENSION
     Dosage: 30 MG, ONCE DAILY, IN THE MORNING
     Route: 065
  11. BISOPROLOL [Concomitant]
     Active Substance: BISOPROLOL
     Indication: PRODUCT USED FOR UNKNOWN INDICATION
     Route: 065

REACTIONS (3)
  - Cardiac autonomic neuropathy [Not Recovered/Not Resolved]
  - Supine hypertension [Recovering/Resolving]
  - Back pain [Not Recovered/Not Resolved]

NARRATIVE: CASE EVENT DATE: 20171020
